FAERS Safety Report 26119151 (Version 2)
Quarter: 2025Q4

REPORT INFORMATION
  Report Type: Spontaneous
  Country: CH (occurrence: CH)
  Receive Date: 20251204
  Receipt Date: 20251217
  Transmission Date: 20260117
  Serious: Yes (Death, Other)
  Sender: EXELIXIS
  Company Number: CH-IPSEN Group, Research and Development-2025-00575

PATIENT
  Age: 77 Year
  Sex: Female

DRUGS (5)
  1. CABOMETYX [Suspect]
     Active Substance: CABOZANTINIB S-MALATE
     Indication: Angiosarcoma metastatic
     Dosage: 40 MG, QD
     Route: 048
     Dates: start: 20241011, end: 20241230
  2. CABOMETYX [Suspect]
     Active Substance: CABOZANTINIB S-MALATE
     Indication: Off label use
  3. NIVOLUMAB [Suspect]
     Active Substance: NIVOLUMAB
     Indication: Angiosarcoma metastatic
     Dosage: UNK
  4. LERCANIDIPINE [Concomitant]
     Active Substance: LERCANIDIPINE
     Dosage: 20 MG, QD
  5. EUTHYROX [Concomitant]
     Active Substance: LEVOTHYROXINE SODIUM
     Dosage: 50 UG, QD

REACTIONS (3)
  - Sepsis [Fatal]
  - Gastrointestinal perforation [Unknown]
  - Off label use [Unknown]

NARRATIVE: CASE EVENT DATE: 20241011
